FAERS Safety Report 7386116-9 (Version None)
Quarter: 2011Q1

REPORT INFORMATION
  Report Type: 
  Country: None (occurrence: None)
  Receive Date: 20110329
  Receipt Date: 20110329
  Transmission Date: 20110831
  Serious: Yes (Other)
  Sender: FDA-Public Use
  Company Number: None

PATIENT
  Age: 75 Year
  Sex: Male
  Weight: 63.6 kg

DRUGS (2)
  1. VICTOZA [Suspect]
     Indication: DIABETES MELLITUS
     Dosage: 1.8 MG DAILY SQ
     Route: 058
     Dates: start: 20100223, end: 20101201
  2. EXENATIDE 10 MCG/0.04 AMLYN AND ELI LILLY [Suspect]
     Dosage: 10 MCG BID SQ
     Route: 058
     Dates: start: 20100112, end: 20101223

REACTIONS (2)
  - PANCREATIC ATROPHY [None]
  - PANCREATIC CARCINOMA STAGE II [None]
